FAERS Safety Report 11139247 (Version 1)
Quarter: 2015Q2

REPORT INFORMATION
  Report Type: Spontaneous
  Country: US (occurrence: US)
  Receive Date: 20150527
  Receipt Date: 20150527
  Transmission Date: 20150821
  Serious: Yes (Hospitalization)
  Sender: FDA-Public Use
  Company Number: US-JNJFOC-20150514089

PATIENT
  Age: 83 Year
  Sex: Male

DRUGS (4)
  1. AMIODARONE [Interacting]
     Active Substance: AMIODARONE
     Indication: PRODUCT USED FOR UNKNOWN INDICATION
     Route: 048
  2. RIVAROXABAN [Suspect]
     Active Substance: RIVAROXABAN
     Indication: DEEP VEIN THROMBOSIS
     Route: 048
  3. ACETYLSALICYLIC ACID [Interacting]
     Active Substance: ASPIRIN
     Indication: PRODUCT USED FOR UNKNOWN INDICATION
     Route: 048
  4. DILTIAZEM HYDROCHLORIDE EXTENDED RELEASE [Interacting]
     Active Substance: DILTIAZEM HYDROCHLORIDE
     Indication: PRODUCT USED FOR UNKNOWN INDICATION
     Route: 048

REACTIONS (9)
  - Upper gastrointestinal haemorrhage [Recovering/Resolving]
  - Hypotension [Recovering/Resolving]
  - Drug interaction [Unknown]
  - Coagulopathy [Recovering/Resolving]
  - Blood urea nitrogen/creatinine ratio increased [Unknown]
  - Ecchymosis [Recovering/Resolving]
  - International normalised ratio increased [Recovering/Resolving]
  - Haemoglobin decreased [Recovering/Resolving]
  - Epistaxis [Recovering/Resolving]
